FAERS Safety Report 14562467 (Version 1)
Quarter: 2018Q1

REPORT INFORMATION
  Report Type: Spontaneous
  Country: US (occurrence: US)
  Receive Date: 20180222
  Receipt Date: 20180222
  Transmission Date: 20180509
  Serious: Yes (Other)
  Sender: FDA-Public Use
  Company Number: US-PFIZER INC-2018070930

PATIENT
  Age: 27 Year
  Sex: Female

DRUGS (2)
  1. ALPRAZOLAM. [Suspect]
     Active Substance: ALPRAZOLAM
     Dosage: 30 TABLETS OF 0.5 MG
     Route: 048
  2. BUPROPION. [Suspect]
     Active Substance: BUPROPION
     Indication: ANTIDEPRESSANT THERAPY
     Dosage: 30 TABLETS OF 150 MG
     Route: 048

REACTIONS (4)
  - Suicide attempt [Unknown]
  - Overdose [Unknown]
  - Mental status changes [Unknown]
  - Tremor [Unknown]
